FAERS Safety Report 24818526 (Version 1)
Quarter: 2025Q1

REPORT INFORMATION
  Report Type: Spontaneous
  Country: US (occurrence: US)
  Receive Date: 20250108
  Receipt Date: 20250108
  Transmission Date: 20250409
  Serious: No
  Sender: STRIDES
  Company Number: US-STRIDES ARCOLAB LIMITED-2024SP013121

PATIENT
  Age: 43 Year
  Sex: Male

DRUGS (21)
  1. DOXYCYCLINE [Suspect]
     Active Substance: DOXYCYCLINE
     Indication: Campylobacter infection
     Route: 065
  2. DOXYCYCLINE [Suspect]
     Active Substance: DOXYCYCLINE
     Indication: Infection
  3. DOXYCYCLINE [Suspect]
     Active Substance: DOXYCYCLINE
     Indication: Bacteraemia
  4. PREDNISONE [Concomitant]
     Active Substance: PREDNISONE
     Indication: Bruton^s agammaglobulinaemia
     Route: 048
  5. PREDNISONE [Concomitant]
     Active Substance: PREDNISONE
     Indication: Inflammatory bowel disease
     Route: 048
  6. PREDNISONE [Concomitant]
     Active Substance: PREDNISONE
     Route: 048
  7. ERTAPENEM [Concomitant]
     Active Substance: ERTAPENEM
     Indication: Campylobacter infection
     Route: 065
  8. ERTAPENEM [Concomitant]
     Active Substance: ERTAPENEM
     Indication: Bacteraemia
     Route: 065
  9. ERTAPENEM [Concomitant]
     Active Substance: ERTAPENEM
     Indication: Infection
     Route: 065
  10. ERTAPENEM [Concomitant]
     Active Substance: ERTAPENEM
     Route: 065
  11. ERTAPENEM [Concomitant]
     Active Substance: ERTAPENEM
     Route: 065
  12. VEDOLIZUMAB [Concomitant]
     Active Substance: VEDOLIZUMAB
     Indication: Bruton^s agammaglobulinaemia
     Route: 065
  13. VEDOLIZUMAB [Concomitant]
     Active Substance: VEDOLIZUMAB
     Indication: Inflammatory bowel disease
  14. Immunoglobulin [Concomitant]
     Indication: Bruton^s agammaglobulinaemia
     Route: 042
  15. Immunoglobulin [Concomitant]
     Indication: Inflammatory bowel disease
  16. AMOXICILLIN\CLAVULANIC ACID [Concomitant]
     Active Substance: AMOXICILLIN\CLAVULANIC ACID
     Indication: Campylobacter infection
     Route: 065
  17. AMOXICILLIN\CLAVULANIC ACID [Concomitant]
     Active Substance: AMOXICILLIN\CLAVULANIC ACID
     Indication: Bacteraemia
  18. AMOXICILLIN\CLAVULANIC ACID [Concomitant]
     Active Substance: AMOXICILLIN\CLAVULANIC ACID
     Indication: Infection
  19. CEFEPIME [Concomitant]
     Active Substance: CEFEPIME HYDROCHLORIDE
     Indication: Campylobacter infection
     Route: 065
  20. CEFEPIME [Concomitant]
     Active Substance: CEFEPIME HYDROCHLORIDE
     Indication: Bacteraemia
  21. CEFEPIME [Concomitant]
     Active Substance: CEFEPIME HYDROCHLORIDE
     Indication: Infection

REACTIONS (1)
  - Photosensitivity reaction [Unknown]
